FAERS Safety Report 13681892 (Version 1)
Quarter: 2017Q2

REPORT INFORMATION
  Report Type: Spontaneous
  Country: US (occurrence: US)
  Receive Date: 20170622
  Receipt Date: 20170622
  Transmission Date: 20170830
  Serious: Yes (Hospitalization)
  Sender: FDA-Public Use
  Company Number: None

PATIENT
  Age: 68 Year
  Sex: Male

DRUGS (1)
  1. ASPIRIN. [Suspect]
     Active Substance: ASPIRIN
     Indication: THROMBOSIS PROPHYLAXIS
     Route: 048
     Dates: start: 20170113

REACTIONS (6)
  - Gastric ulcer [None]
  - Gastric haemorrhage [None]
  - Hypotension [None]
  - Haemoglobin decreased [None]
  - Portal hypertensive gastropathy [None]
  - Varices oesophageal [None]

NARRATIVE: CASE EVENT DATE: 20170524
